FAERS Safety Report 25170313 (Version 4)
Quarter: 2025Q2

REPORT INFORMATION
  Report Type: Report from Study
  Country: CA (occurrence: CA)
  Receive Date: 20250408
  Receipt Date: 20250506
  Transmission Date: 20250716
  Serious: Yes (Hospitalization)
  Sender: ABBVIE
  Company Number: CA-ABBVIE-6209816

PATIENT
  Sex: Male

DRUGS (2)
  1. LUPRON [Suspect]
     Active Substance: LEUPROLIDE ACETATE
     Indication: Prostate cancer
     Dosage: FORM STRENGTH:22.5 MG
     Route: 030
     Dates: start: 20201228
  2. LUPRON [Suspect]
     Active Substance: LEUPROLIDE ACETATE
     Dosage: FORM STRENGTH:22.5 MG
     Route: 030

REACTIONS (6)
  - Fall [Unknown]
  - Depressed mood [Unknown]
  - Shoulder fracture [Unknown]
  - Pain in extremity [Unknown]
  - Gait inability [Unknown]
  - Fatigue [Unknown]
